FAERS Safety Report 17866894 (Version 1)
Quarter: 2020Q2

REPORT INFORMATION
  Report Type: Spontaneous
  Country: US (occurrence: US)
  Receive Date: 20200605
  Receipt Date: 20200605
  Transmission Date: 20200714
  Serious: No
  Sender: FDA-Public Use
  Company Number: US-BRECKENRIDGE PHARMACEUTICAL, INC.-2085502

PATIENT
  Age: 62 Year
  Sex: Male

DRUGS (3)
  1. BUPROPION. [Concomitant]
     Active Substance: BUPROPION
  2. DULOXETINE. [Suspect]
     Active Substance: DULOXETINE
     Indication: NEUROPATHY PERIPHERAL
     Route: 048
  3. HUMULIN R [Concomitant]
     Active Substance: INSULIN HUMAN

REACTIONS (8)
  - Irritability [None]
  - Hyperhidrosis [None]
  - Hangover [None]
  - Palpitations [None]
  - Hallucination [None]
  - Mood swings [None]
  - Headache [None]
  - Sleep disorder [None]
